FAERS Safety Report 10484018 (Version 1)
Quarter: 2014Q3

REPORT INFORMATION
  Report Type: Report from Study
  Country: CA (occurrence: CA)
  Receive Date: 20140930
  Receipt Date: 20140930
  Transmission Date: 20150326
  Serious: Yes (Other)
  Sender: FDA-Public Use
  Company Number: CA-BAYER-2014-138733

PATIENT
  Age: 31 Year
  Sex: Female

DRUGS (3)
  1. ADEMPAS [Suspect]
     Active Substance: RIOCIGUAT
     Indication: PULMONARY HYPERTENSION
     Dosage: 1.5 MG, TID
     Route: 048
     Dates: start: 20140812
  2. ASA [Concomitant]
     Active Substance: ASPIRIN
  3. FRAGMIN [Concomitant]
     Active Substance: DALTEPARIN SODIUM

REACTIONS (2)
  - Arteriovenous malformation [Not Recovered/Not Resolved]
  - Arteriovenous malformation [None]

NARRATIVE: CASE EVENT DATE: 20140812
